FAERS Safety Report 8012111-2 (Version None)
Quarter: 2011Q4

REPORT INFORMATION
  Report Type: 
  Country: None (occurrence: None)
  Receive Date: 20111228
  Receipt Date: 20111223
  Transmission Date: 20120403
  Serious: No
  Sender: FDA-Public Use
  Company Number: US-BAYER-2011-123775

PATIENT
  Age: 37 Year
  Sex: Male
  Weight: 72.562 kg

DRUGS (3)
  1. ALEVE (CAPLET) [Suspect]
     Indication: PYREXIA
  2. ALEVE (CAPLET) [Suspect]
     Indication: HEADACHE
     Dosage: UNK UNK, QD
     Route: 048
     Dates: start: 20111221
  3. ALEVE (CAPLET) [Suspect]
     Indication: PAIN IN EXTREMITY

REACTIONS (1)
  - PAIN [None]
